FAERS Safety Report 17228610 (Version 1)
Quarter: 2019Q4

REPORT INFORMATION
  Report Type: Spontaneous
  Country: US (occurrence: US)
  Receive Date: 20191210
  Receipt Date: 20191210
  Transmission Date: 20200122
  Serious: Yes (Hospitalization)
  Sender: FDA-Public Use
  Company Number: None

PATIENT
  Age: 62 Year
  Sex: Male
  Weight: 138.48 kg

DRUGS (1)
  1. TRIAMCINOLONE (TRIAMCINOLONE 40MG/ML INJ, SUSP) [Suspect]
     Active Substance: TRIAMCINOLONE
     Indication: PAIN
     Route: 030
     Dates: start: 20190516, end: 20190516

REACTIONS (7)
  - Lip swelling [None]
  - Anaphylactic reaction [None]
  - Syncope [None]
  - Pruritus [None]
  - Asthenia [None]
  - Pharyngeal swelling [None]
  - Hyperhidrosis [None]

NARRATIVE: CASE EVENT DATE: 20190516
